FAERS Safety Report 7274755-5 (Version None)
Quarter: 2011Q1

REPORT INFORMATION
  Report Type: 
  Country: None (occurrence: None)
  Receive Date: 20110128
  Receipt Date: 19990224
  Transmission Date: 20110831
  Serious: Yes (Death)
  Sender: FDA-Public Use
  Company Number: LEO-2011-00079

PATIENT
  Age: 92 Year
  Sex: Female
  Weight: 55 kg

DRUGS (2)
  1. INNOHEP [Suspect]
     Indication: THROMBOSIS PROPHYLAXIS
     Dosage: 3500 IU (3500 IU), SUBCUTANEOUS
     Route: 058
  2. KARDEGIC (ACETYLSALICYLATE LYSINE) [Suspect]
     Indication: PRODUCT USED FOR UNKNOWN INDICATION

REACTIONS (3)
  - SUDDEN DEATH [None]
  - PULMONARY EMBOLISM [None]
  - DRUG EFFECT DECREASED [None]
